FAERS Safety Report 9586452 (Version 1)
Quarter: 2013Q4

REPORT INFORMATION
  Report Type: Report from Study
  Country: US (occurrence: US)
  Receive Date: 20131003
  Receipt Date: 20131003
  Transmission Date: 20140711
  Serious: Yes (Other)
  Sender: FDA-Public Use
  Company Number: US-PFIZER INC-2013281011

PATIENT
  Age: 74 Year
  Sex: Female
  Weight: 67.57 kg

DRUGS (4)
  1. LIPITOR [Suspect]
     Indication: BLOOD CHOLESTEROL INCREASED
     Dosage: 20 MG, 1X/DAY
     Dates: start: 200808
  2. LISINOPRIL [Concomitant]
     Dosage: 20 MG, 2X/DAY
  3. DIGOXIN [Concomitant]
     Dosage: 0.125 MG, 1X/DAY
  4. METOPROLOL [Concomitant]
     Dosage: 25 MG, (HALF A DAY)

REACTIONS (1)
  - Blood pressure increased [Recovered/Resolved]
